FAERS Safety Report 6744703-2 (Version None)
Quarter: 2010Q2

REPORT INFORMATION
  Report Type: 
  Country: None (occurrence: None)
  Receive Date: 20100527
  Receipt Date: 20100524
  Transmission Date: 20101027
  Serious: Yes (Life-Threatening, Hospitalization, Other)
  Sender: FDA-Public Use
  Company Number: IT-ROXANE LABORATORIES, INC.-2010-RO-00623RO

PATIENT
  Age: 8 Month
  Sex: Female

DRUGS (14)
  1. PREDNISONE TAB [Suspect]
     Indication: ANAEMIA HAEMOLYTIC AUTOIMMUNE
     Route: 048
  2. CYCLOPHOSPHAMIDE [Suspect]
     Indication: ANAEMIA HAEMOLYTIC AUTOIMMUNE
  3. METHYLPREDNISOLONE [Suspect]
     Indication: ANAEMIA HAEMOLYTIC AUTOIMMUNE
     Route: 042
  4. METHYLPREDNISOLONE [Suspect]
  5. RITUXIMAB [Suspect]
     Indication: ANAEMIA HAEMOLYTIC AUTOIMMUNE
  6. RITUXIMAB [Suspect]
  7. IMMUNE GLOBULIN NOS [Suspect]
     Indication: IMMUNOGLOBULIN THERAPY
     Route: 042
  8. AMIKACIN [Suspect]
  9. CEFTAZIDIME [Suspect]
  10. GRANULOCYTE COLONY-STIMULATING FACTOR [Suspect]
  11. VORICONAZOLE [Suspect]
  12. CASPOFUNGIN ACETATE [Suspect]
  13. LEVOFLOXACIN [Suspect]
     Indication: PSEUDOMONAS INFECTION
  14. COLIMICINE [Suspect]
     Indication: PSEUDOMONAS INFECTION

REACTIONS (15)
  - ACUTE RESPIRATORY DISTRESS SYNDROME [None]
  - ASPERGILLUS TEST [None]
  - CARDIAC DISORDER [None]
  - DILATATION VENTRICULAR [None]
  - DRUG INEFFECTIVE [None]
  - INTERSTITIAL LUNG DISEASE [None]
  - MULTIPLE-DRUG RESISTANCE [None]
  - PATHOGEN RESISTANCE [None]
  - PNEUMOMEDIASTINUM [None]
  - PSEUDOMONAS INFECTION [None]
  - PULMONARY EMBOLISM [None]
  - PULMONARY HYPERTENSION [None]
  - RESPIRATORY FAILURE [None]
  - STEROID WITHDRAWAL SYNDROME [None]
  - THROMBOSIS IN DEVICE [None]
